FAERS Safety Report 15477498 (Version 1)
Quarter: 2018Q4

REPORT INFORMATION
  Report Type: Report from Study
  Country: DE (occurrence: DE)
  Receive Date: 20181009
  Receipt Date: 20181009
  Transmission Date: 20190205
  Serious: No
  Sender: FDA-Public Use
  Company Number: DE-IPSEN BIOPHARMACEUTICALS, INC.-2018-03364

PATIENT
  Sex: Female

DRUGS (3)
  1. INCRELEX [Suspect]
     Active Substance: MECASERMIN
     Indication: PRIMARY INSULIN LIKE GROWTH FACTOR-1 DEFICIENCY
     Route: 065
  2. INCRELEX [Suspect]
     Active Substance: MECASERMIN
     Route: 065
  3. INCRELEX [Suspect]
     Active Substance: MECASERMIN
     Route: 065
     Dates: end: 20161009

REACTIONS (4)
  - Neutralising antibodies [Unknown]
  - Insulin-like growth factor increased [Unknown]
  - Drug intolerance [Unknown]
  - Growth failure [Unknown]
